FAERS Safety Report 21321952 (Version 1)
Quarter: 2022Q3

REPORT INFORMATION
  Report Type: Other
  Country: DE (occurrence: None)
  Receive Date: 20220912
  Receipt Date: 20220912
  Transmission Date: 20221027
  Serious: No
  Sender: FDA-Public Use
  Company Number: DE-ROCHE-3174490

PATIENT
  Age: 54 Year
  Sex: Female
  Weight: 60 kg

DRUGS (28)
  1. OCRELIZUMAB [Suspect]
     Active Substance: OCRELIZUMAB
     Indication: Relapsing multiple sclerosis
     Route: 042
     Dates: start: 20181127, end: 20181210
  2. OCRELIZUMAB [Suspect]
     Active Substance: OCRELIZUMAB
     Route: 042
     Dates: start: 20190613, end: 20210617
  3. RANITIDINE HYDROCHLORIDE [Concomitant]
     Active Substance: RANITIDINE HYDROCHLORIDE
     Indication: Prophylaxis
     Dosage: DEFINITION OF THE INTERVAL: AS REQUIRED
     Route: 048
     Dates: start: 20171114
  4. RANITIDINE HYDROCHLORIDE [Concomitant]
     Active Substance: RANITIDINE HYDROCHLORIDE
     Route: 048
     Dates: start: 20181126, end: 20181128
  5. RANITIDINE HYDROCHLORIDE [Concomitant]
     Active Substance: RANITIDINE HYDROCHLORIDE
     Route: 048
     Dates: start: 20181209, end: 20181211
  6. CYMBALTA [Concomitant]
     Active Substance: DULOXETINE HYDROCHLORIDE
     Indication: Pain
     Route: 048
     Dates: start: 20160105, end: 202012
  7. CYMBALTA [Concomitant]
     Active Substance: DULOXETINE HYDROCHLORIDE
     Indication: Dysaesthesia
  8. AMANTADINE [Concomitant]
     Active Substance: AMANTADINE
     Indication: Fatigue
     Route: 048
     Dates: start: 20140826
  9. PREDNISOLONE [Concomitant]
     Active Substance: PREDNISOLONE
     Indication: Prophylaxis
     Route: 048
     Dates: start: 20181127, end: 20181127
  10. PREDNISOLONE [Concomitant]
     Active Substance: PREDNISOLONE
     Route: 048
     Dates: start: 20181210, end: 20181210
  11. EBASTINE [Concomitant]
     Active Substance: EBASTINE
     Indication: Prophylaxis
     Route: 048
     Dates: start: 20181126, end: 20181128
  12. EBASTINE [Concomitant]
     Active Substance: EBASTINE
     Route: 048
     Dates: start: 20181209, end: 20181211
  13. PFIZER-BIONTECH COVID-19 VACCINE [Concomitant]
     Active Substance: TOZINAMERAN
     Indication: COVID-19 prophylaxis
     Route: 030
     Dates: start: 20210420, end: 20210420
  14. PFIZER-BIONTECH COVID-19 VACCINE [Concomitant]
     Active Substance: TOZINAMERAN
     Route: 030
     Dates: start: 20211118, end: 20211118
  15. PFIZER-BIONTECH COVID-19 VACCINE [Concomitant]
     Active Substance: TOZINAMERAN
     Route: 030
     Dates: start: 20210511, end: 20210511
  16. DALFAMPRIDINE [Concomitant]
     Active Substance: DALFAMPRIDINE
     Route: 048
     Dates: start: 20120119, end: 20210922
  17. CHOLECALCIFEROL [Concomitant]
     Active Substance: CHOLECALCIFEROL
     Indication: Vitamin D deficiency
     Route: 048
     Dates: start: 20130211
  18. BUTYLSCOPOLAMINE BROMIDE [Concomitant]
     Active Substance: BUTYLSCOPOLAMINE BROMIDE
     Indication: Abdominal distension
     Route: 048
  19. VITAMIN B-KOMPLEX [Concomitant]
     Indication: Prophylaxis
     Route: 048
  20. OXYCODONE [Concomitant]
     Active Substance: OXYCODONE
     Indication: Pain
     Route: 048
  21. OXYCODONE [Concomitant]
     Active Substance: OXYCODONE
     Indication: Dysaesthesia
     Route: 048
  22. SERTRALINE HYDROCHLORIDE [Concomitant]
     Active Substance: SERTRALINE HYDROCHLORIDE
     Indication: Dysaesthesia
     Route: 048
     Dates: start: 20200925, end: 202012
  23. VENLAFAXINE HYDROCHLORIDE [Concomitant]
     Active Substance: VENLAFAXINE HYDROCHLORIDE
     Indication: Depression
     Dates: start: 20210311
  24. COENZYM Q10 [Concomitant]
     Route: 048
  25. ZOLPIDEM [Concomitant]
     Active Substance: ZOLPIDEM TARTRATE
     Dosage: DEFINITION OF THE INTERVAL: AS REQUIRED
     Route: 048
     Dates: start: 20160105
  26. PIRACETAM [Concomitant]
     Active Substance: PIRACETAM
     Dosage: DEFINITION OF THE INTERVAL: AS REQUIRED
     Route: 048
  27. IBUPROFEN [Concomitant]
     Active Substance: IBUPROFEN
     Indication: Pain
     Route: 048
  28. GABAPENTIN [Concomitant]
     Active Substance: GABAPENTIN
     Indication: Nystagmus
     Route: 048
     Dates: start: 20121114, end: 201906

REACTIONS (1)
  - Oral herpes [Not Recovered/Not Resolved]

NARRATIVE: CASE EVENT DATE: 20220324
